FAERS Safety Report 24330239 (Version 1)
Quarter: 2024Q3

REPORT INFORMATION
  Report Type: Spontaneous
  Country: US (occurrence: US)
  Receive Date: 20240918
  Receipt Date: 20240918
  Transmission Date: 20241017
  Serious: No
  Sender: AMGEN
  Company Number: US-AMGEN-USASP2024183026

PATIENT
  Age: 44 Year
  Sex: Male

DRUGS (6)
  1. PREDNISONE [Suspect]
     Active Substance: PREDNISONE
     Indication: COVID-19
     Dosage: UNK
     Route: 065
  2. APIXABAN [Concomitant]
     Active Substance: APIXABAN
     Indication: Pulmonary embolism
     Dosage: 10 MILLIGRAM, BID
     Route: 065
  3. FAMOTIDINE [Concomitant]
     Active Substance: FAMOTIDINE
     Indication: Pulmonary embolism
     Dosage: 40 MILLIGRAM, QD
     Route: 065
  4. SOLU-MEDROL [Concomitant]
     Active Substance: METHYLPREDNISOLONE SODIUM SUCCINATE
     Indication: Pulmonary embolism
     Dosage: 60 MILLIGRAM, BID
     Route: 042
  5. CEFTRIAXONE [Concomitant]
     Active Substance: CEFTRIAXONE\CEFTRIAXONE SODIUM
     Dosage: 2 GRAM, QD
     Route: 042
  6. CLARITHROMYCIN [Concomitant]
     Active Substance: CLARITHROMYCIN
     Dosage: 500 MILLIGRAM, BID
     Route: 048

REACTIONS (3)
  - Pyrexia [Recovered/Resolved]
  - Chills [Recovered/Resolved]
  - Off label use [Unknown]
